FAERS Safety Report 18521895 (Version 2)
Quarter: 2020Q4

REPORT INFORMATION
  Report Type: Report from Study
  Country: GB (occurrence: GB)
  Receive Date: 20201119
  Receipt Date: 20201201
  Transmission Date: 20210114
  Serious: Yes (Other)
  Sender: FDA-Public Use
  Company Number: GB-PFIZER INC-2020454718

PATIENT
  Age: 42 Year
  Sex: Male

DRUGS (4)
  1. ATRACURIUM BESILATE [Suspect]
     Active Substance: ATRACURIUM BESYLATE
     Dosage: INITIAL DOSE 0.4 MG/(KG.H) INFUSION WITHIN 30 MIN
     Route: 050
  2. MORPHINE [Suspect]
     Active Substance: MORPHINE
     Indication: SEDATION
     Dosage: 2-4 MG/H INFUSION
     Route: 050
  3. ATRACURIUM BESILATE [Suspect]
     Active Substance: ATRACURIUM BESYLATE
     Indication: MECHANICAL VENTILATION
     Dosage: UNK
     Route: 050
  4. ATRACURIUM BESILATE [Suspect]
     Active Substance: ATRACURIUM BESYLATE
     Dosage: 549 MG/KG-1
     Route: 050

REACTIONS (1)
  - Seizure [Unknown]
